FAERS Safety Report 24802278 (Version 1)
Quarter: 2025Q1

REPORT INFORMATION
  Report Type: Spontaneous
  Country: CN (occurrence: CN)
  Receive Date: 20250103
  Receipt Date: 20250103
  Transmission Date: 20250408
  Serious: Yes (Hospitalization)
  Sender: CSL BEHRING
  Company Number: CN-BEH-2024190294

PATIENT
  Age: 30 Year
  Sex: Female
  Weight: 67.5 kg

DRUGS (1)
  1. ALBURX [Suspect]
     Active Substance: ALBUMIN HUMAN
     Indication: Protein deficiency
     Dosage: 10 G, OD
     Route: 041
     Dates: start: 20241221, end: 20241221

REACTIONS (3)
  - Asthma [Recovered/Resolved]
  - Erythema [Recovered/Resolved]
  - Rash [Recovered/Resolved]

NARRATIVE: CASE EVENT DATE: 20241221
